FAERS Safety Report 23436156 (Version 2)
Quarter: 2024Q3

REPORT INFORMATION
  Report Type: Spontaneous
  Country: PK (occurrence: PK)
  Receive Date: 20240124
  Receipt Date: 20240808
  Transmission Date: 20241017
  Serious: Yes (Other)
  Sender: AMGEN
  Company Number: PK-PFIZER INC-PV202300158315

PATIENT
  Age: 75 Year
  Sex: Female

DRUGS (9)
  1. ENBREL [Suspect]
     Active Substance: BENZYL ALCOHOL\ETANERCEPT
     Indication: Rheumatoid arthritis
     Dosage: 50 MG, WEEKLY
     Route: 058
     Dates: start: 202110
  2. ENBREL [Suspect]
     Active Substance: BENZYL ALCOHOL\ETANERCEPT
     Dosage: 50 MG, FORTNIGHTLY
     Route: 065
  3. METHOTREXATE [Concomitant]
     Active Substance: METHOTREXATE
     Indication: Product used for unknown indication
     Dosage: 1 DF, EVERY FRIDAY EVENING
     Route: 065
  4. FOLIC ACID [Concomitant]
     Active Substance: FOLIC ACID
     Indication: Product used for unknown indication
     Dosage: 1 DF, EVERY SUNDAY
     Route: 065
  5. DICLOFENAC SODIUM [Concomitant]
     Active Substance: DICLOFENAC\DICLOFENAC SODIUM
     Indication: Pain
     Dosage: THREE TO FOUR TIMES DAILY
     Route: 065
  6. PANADOL [Concomitant]
     Active Substance: ACETAMINOPHEN
     Indication: Product used for unknown indication
     Dosage: 2 DF, 2X/DAY
     Route: 065
  7. RABECID [Concomitant]
     Indication: Product used for unknown indication
     Dosage: 1 DF, IN THE MORNING BEFORE BREAKFAST
     Route: 065
  8. DEPO-MEDROL [Concomitant]
     Active Substance: METHYLPREDNISOLONE ACETATE
     Indication: Product used for unknown indication
     Dosage: 1 INJECTION
     Route: 030
  9. DICLOFENAC SODIUM [Concomitant]
     Active Substance: DICLOFENAC\DICLOFENAC SODIUM
     Indication: Pain
     Dosage: 1 DF, 1X/DAY TAKE IT WITH FOOD
     Route: 065

REACTIONS (5)
  - Coronary arterial stent insertion [Unknown]
  - Teeth brittle [Unknown]
  - Intentional product misuse [Unknown]
  - Pain [Unknown]
  - Hypertension [Unknown]

NARRATIVE: CASE EVENT DATE: 20230101
